FAERS Safety Report 26118213 (Version 3)
Quarter: 2025Q4

REPORT INFORMATION
  Report Type: Spontaneous
  Country: CH (occurrence: CH)
  Receive Date: 20251203
  Receipt Date: 20251214
  Transmission Date: 20260118
  Serious: Yes (Other)
  Sender: PFIZER
  Company Number: CH-PFIZER INC-PV202500139238

PATIENT
  Age: 13 Year
  Sex: Female

DRUGS (20)
  1. METHOTREXATE SODIUM [Suspect]
     Active Substance: METHOTREXATE SODIUM
     Indication: End stage renal disease
     Dosage: UNK, CYCLIC (50% OF STANDARD DOSES)
  2. METHOTREXATE SODIUM [Suspect]
     Active Substance: METHOTREXATE SODIUM
     Indication: B-cell lymphoma
  3. METHOTREXATE SODIUM [Suspect]
     Active Substance: METHOTREXATE SODIUM
     Indication: Diffuse large B-cell lymphoma
  4. CYCLOPHOSPHAMIDE [Concomitant]
     Active Substance: CYCLOPHOSPHAMIDE
     Indication: End stage renal disease
     Dosage: UNK, CYCLIC (50% OF STANDARD DOSES)
  5. CYCLOPHOSPHAMIDE [Concomitant]
     Active Substance: CYCLOPHOSPHAMIDE
     Indication: B-cell lymphoma
  6. CYCLOPHOSPHAMIDE [Concomitant]
     Active Substance: CYCLOPHOSPHAMIDE
     Indication: Diffuse large B-cell lymphoma
  7. RITUXIMAB [Concomitant]
     Active Substance: RITUXIMAB
     Indication: End stage renal disease
     Dosage: UNK, CYCLIC
  8. RITUXIMAB [Concomitant]
     Active Substance: RITUXIMAB
     Indication: B-cell lymphoma
  9. RITUXIMAB [Concomitant]
     Active Substance: RITUXIMAB
     Indication: Diffuse large B-cell lymphoma
  10. VINCRISTINE [Concomitant]
     Active Substance: VINCRISTINE
     Indication: End stage renal disease
     Dosage: UNK, CYCLIC
  11. VINCRISTINE [Concomitant]
     Active Substance: VINCRISTINE
     Indication: B-cell lymphoma
  12. VINCRISTINE [Concomitant]
     Active Substance: VINCRISTINE
     Indication: Diffuse large B-cell lymphoma
  13. PREDNISOLONE [Concomitant]
     Active Substance: PREDNISOLONE
     Indication: End stage renal disease
     Dosage: UNK, CYCLIC
  14. PREDNISOLONE [Concomitant]
     Active Substance: PREDNISOLONE
     Indication: B-cell lymphoma
  15. PREDNISOLONE [Concomitant]
     Active Substance: PREDNISOLONE
     Indication: Diffuse large B-cell lymphoma
  16. ADRIAMYCIN [Concomitant]
     Active Substance: DOXORUBICIN HYDROCHLORIDE
     Indication: End stage renal disease
     Dosage: UNK, CYCLIC
  17. ADRIAMYCIN [Concomitant]
     Active Substance: DOXORUBICIN HYDROCHLORIDE
     Indication: B-cell lymphoma
  18. ADRIAMYCIN [Concomitant]
     Active Substance: DOXORUBICIN HYDROCHLORIDE
     Indication: Diffuse large B-cell lymphoma
  19. CYTARABINE [Concomitant]
     Active Substance: CYTARABINE
     Indication: End stage renal disease
     Dosage: UNK, CYCLIC
  20. CYTARABINE [Concomitant]
     Active Substance: CYTARABINE
     Indication: B-cell lymphoma

REACTIONS (2)
  - Mucosal inflammation [Unknown]
  - Haemoptysis [Unknown]
